FAERS Safety Report 9291389 (Version 1)
Quarter: 2013Q2

REPORT INFORMATION
  Report Type: Spontaneous
  Country: US (occurrence: US)
  Receive Date: 20130515
  Receipt Date: 20130515
  Transmission Date: 20140414
  Serious: No
  Sender: FDA-Public Use
  Company Number: US-BAUSCH-BL-2013-000644

PATIENT
  Age: 85 Year
  Sex: Male

DRUGS (3)
  1. BROMDAY 0.09% [Suspect]
     Indication: CATARACT OPERATION
     Route: 047
     Dates: start: 20120702
  2. CIPROFLOXACIN [Concomitant]
     Indication: CATARACT OPERATION
     Route: 047
     Dates: start: 20120702
  3. PREDNISOLONE ACETATE [Concomitant]
     Indication: CATARACT OPERATION
     Route: 047
     Dates: start: 20120702

REACTIONS (1)
  - Eye irritation [Recovering/Resolving]
